FAERS Safety Report 6782661-5 (Version None)
Quarter: 2010Q2

REPORT INFORMATION
  Report Type: 
  Country: None (occurrence: None)
  Receive Date: 20100621
  Receipt Date: 20100607
  Transmission Date: 20101027
  Serious: Yes (Other)
  Sender: FDA-Public Use
  Company Number: DK-ELI_LILLY_AND_COMPANY-DK201006001972

PATIENT
  Sex: Male
  Weight: 80 kg

DRUGS (1)
  1. ZYPREXA [Suspect]
     Indication: ANXIETY
     Route: 048

REACTIONS (22)
  - AGGRESSION [None]
  - ANXIETY [None]
  - ASTHENIA [None]
  - CHILLS [None]
  - COLD SWEAT [None]
  - COMA [None]
  - DISTURBANCE IN ATTENTION [None]
  - DIZZINESS [None]
  - DYSPNOEA [None]
  - FATIGUE [None]
  - FEELING ABNORMAL [None]
  - HOMICIDAL IDEATION [None]
  - HYPOACUSIS [None]
  - HYPOAESTHESIA [None]
  - INSOMNIA [None]
  - LETHARGY [None]
  - METAMORPHOPSIA [None]
  - MIGRAINE [None]
  - OFF LABEL USE [None]
  - TINNITUS [None]
  - TREMOR [None]
  - VISION BLURRED [None]
